FAERS Safety Report 5422487-8 (Version None)
Quarter: 2007Q3

REPORT INFORMATION
  Report Type: 
  Country: None (occurrence: None)
  Receive Date: 20070820
  Receipt Date: 20070806
  Transmission Date: 20080115
  Serious: Yes (Other)
  Sender: FDA-Public Use
  Company Number: 2006VX002495

PATIENT
  Age: 53 Year
  Sex: Male
  Weight: 53.978 kg

DRUGS (13)
  1. INTERFERON ALFACON-1 [Suspect]
     Indication: HEPATITIS C
     Dosage: 15 UG;QD;SC
     Route: 058
     Dates: start: 20060818, end: 20070501
  2. RIBAVIRIN [Suspect]
     Indication: HEPATITIS C
     Dosage: 400 MG;BID;PO
     Route: 048
     Dates: start: 20060820, end: 20070530
  3. SULFASALAZINE [Concomitant]
  4. ADVAIR DISKUS 100/50 [Concomitant]
  5. MILK THISTLE [Concomitant]
  6. CALCIUM WITH VITAMIN D [Concomitant]
  7. VITAMIN E [Concomitant]
  8. GLUCOSAMINE CHONDROITIN [Concomitant]
  9. IBUPROFEN [Concomitant]
  10. LOPRESSOR [Concomitant]
  11. ALBUTEROL [Concomitant]
  12. VICODIN [Concomitant]
  13. ARTHROTEC [Concomitant]

REACTIONS (27)
  - ALANINE AMINOTRANSFERASE INCREASED [None]
  - ASPARTATE AMINOTRANSFERASE INCREASED [None]
  - BLOOD PRESSURE DECREASED [None]
  - BONE MARROW FAILURE [None]
  - CHRONIC OBSTRUCTIVE PULMONARY DISEASE [None]
  - CONDITION AGGRAVATED [None]
  - CONFUSIONAL STATE [None]
  - CONTUSION [None]
  - DEPRESSION [None]
  - FAT NECROSIS [None]
  - GAIT DISTURBANCE [None]
  - HYPOTHYROIDISM [None]
  - INJECTION SITE INDURATION [None]
  - INJECTION SITE INJURY [None]
  - INJECTION SITE NECROSIS [None]
  - INJECTION SITE PAIN [None]
  - INJECTION SITE REACTION [None]
  - PAIN [None]
  - PANCYTOPENIA [None]
  - PNEUMONIA [None]
  - PROTEIN TOTAL DECREASED [None]
  - PRURITUS [None]
  - SKIN LESION [None]
  - VASCULITIS [None]
  - VITILIGO [None]
  - WEIGHT DECREASED [None]
  - WOUND [None]
